FAERS Safety Report 4885129-6 (Version None)
Quarter: 2005Q4

REPORT INFORMATION
  Report Type: 
  Country: None (occurrence: None)
  Receive Date: 20051201
  Receipt Date: 20050915
  Transmission Date: 20060501
  Serious: No
  Sender: FDA-Public Use
  Company Number: 2005PV002142

PATIENT
  Age: 65 Year
  Sex: Male
  Weight: 81.6475 kg

DRUGS (4)
  1. BYETTA [Suspect]
     Indication: DIABETES MELLITUS NON-INSULIN-DEPENDENT
     Dosage: 5 MCG; BID; SC
     Route: 058
     Dates: start: 20050816
  2. HUMULIN R [Concomitant]
  3. MUMULIN N [Concomitant]
  4. CRESTOR [Concomitant]

REACTIONS (8)
  - ABDOMINAL DISTENSION [None]
  - EYE SWELLING [None]
  - HYPERSENSITIVITY [None]
  - INJECTION SITE BRUISING [None]
  - PYREXIA [None]
  - RASH GENERALISED [None]
  - THROAT IRRITATION [None]
  - URTICARIA [None]
